FAERS Safety Report 10235224 (Version 3)
Quarter: 2015Q2

REPORT INFORMATION
  Report Type: Spontaneous
  Country: DE (occurrence: DE)
  Receive Date: 20140613
  Receipt Date: 20150626
  Transmission Date: 20150821
  Serious: Yes (Hospitalization)
  Sender: FDA-Public Use
  Company Number: DE-UCBSA-119278

PATIENT

DRUGS (8)
  1. VIMPAT [Suspect]
     Active Substance: LACOSAMIDE
     Dosage: 100 MG, 2X/DAY (BID)
     Dates: start: 20140323, end: 201403
  2. VIMPAT [Suspect]
     Active Substance: LACOSAMIDE
     Dosage: 50-0-100
     Dates: start: 20140318, end: 201403
  3. VIMPAT [Suspect]
     Active Substance: LACOSAMIDE
     Dosage: 50 MG, 2X/DAY (BID)
     Dates: start: 20140312, end: 201403
  4. VIMPAT [Suspect]
     Active Substance: LACOSAMIDE
     Dosage: UNK
  5. APYDAN [Concomitant]
     Active Substance: OXCARBAZEPINE
     Indication: EPILEPSY
     Dosage: 2 TIME DAILY, 300 MG-0-600 MG
     Route: 048
     Dates: end: 20140402
  6. VIMPAT [Suspect]
     Active Substance: LACOSAMIDE
     Indication: EPILEPSY
     Dosage: 100-0-150 MG
     Dates: start: 20140325, end: 201403
  7. VIMPAT [Suspect]
     Active Substance: LACOSAMIDE
     Dosage: 0-0-50 MG
     Dates: start: 20140310, end: 201403
  8. LYRICA [Concomitant]
     Active Substance: PREGABALIN
     Indication: EPILEPSY
     Dosage: 150 MG, 2X/DAY (BID)
     Route: 048
     Dates: end: 20140505

REACTIONS (2)
  - Sleep disorder [Recovered/Resolved]
  - Restlessness [Recovered/Resolved]

NARRATIVE: CASE EVENT DATE: 20140329
